FAERS Safety Report 19670424 (Version 1)
Quarter: 2021Q3

REPORT INFORMATION
  Report Type: Report from Study
  Country: US (occurrence: US)
  Receive Date: 20210806
  Receipt Date: 20210806
  Transmission Date: 20211014
  Serious: Yes (Hospitalization)
  Sender: FDA-Public Use
  Company Number: US-SAOL THERAPEUTICS-2020SAO00203

PATIENT
  Age: 69 Year
  Sex: Female
  Weight: 99.77 kg

DRUGS (4)
  1. LIORESAL [Suspect]
     Active Substance: BACLOFEN
     Dosage: 1307.23404 ?G, \DAY
     Route: 037
  2. LIORESAL [Suspect]
     Active Substance: BACLOFEN
     Indication: MUSCLE SPASTICITY
     Dosage: 1077.89474 ?G, \DAY
     Route: 037
  3. LIORESAL [Suspect]
     Active Substance: BACLOFEN
     Dosage: 1186.6731 ?G, \DAY
     Route: 037
  4. LIORESAL [Suspect]
     Active Substance: BACLOFEN
     Dosage: 914.73945 ?G, \DAY
     Route: 037

REACTIONS (3)
  - Device dislocation [Recovered/Resolved]
  - Speech disorder [Recovered/Resolved]
  - Confusional state [Recovered/Resolved]

NARRATIVE: CASE EVENT DATE: 20200622
